FAERS Safety Report 8059512-4 (Version None)
Quarter: 2012Q1

REPORT INFORMATION
  Report Type: 
  Country: None (occurrence: None)
  Receive Date: 20120120
  Receipt Date: 20120112
  Transmission Date: 20120608
  Serious: Yes (Other)
  Sender: FDA-Public Use
  Company Number: CH-ROCHE-1025330

PATIENT
  Sex: Female
  Weight: 68.055 kg

DRUGS (2)
  1. FEXOFENADINE HCL [Concomitant]
     Indication: URTICARIA
     Route: 065
     Dates: start: 20110101
  2. XOLAIR [Suspect]
     Indication: URTICARIA
     Route: 065
     Dates: start: 20110601

REACTIONS (1)
  - LYMPHADENOPATHY [None]
